FAERS Safety Report 23189385 (Version 1)
Quarter: 2023Q4

REPORT INFORMATION
  Report Type: Spontaneous
  Country: GR (occurrence: GR)
  Receive Date: 20231116
  Receipt Date: 20231116
  Transmission Date: 20240110
  Serious: Yes (Other)
  Sender: FDA-Public Use
  Company Number: GR-TAKEDA-2023TUS088832

PATIENT
  Age: 76 Year
  Sex: Male

DRUGS (1)
  1. HYQVIA [Suspect]
     Active Substance: HUMAN IMMUNOGLOBULIN G\HYALURONIDASE (HUMAN RECOMBINANT)
     Indication: Product used for unknown indication
     Dosage: 30 GRAM, MONTHLY
     Route: 030
     Dates: start: 202303, end: 20230822

REACTIONS (4)
  - Intestinal operation [Unknown]
  - Product storage error [Unknown]
  - Product use issue [Unknown]
  - No adverse event [Unknown]
